FAERS Safety Report 14285026 (Version 1)
Quarter: 2017Q4

REPORT INFORMATION
  Report Type: Spontaneous
  Country: FR (occurrence: FR)
  Receive Date: 20171214
  Receipt Date: 20171214
  Transmission Date: 20180321
  Serious: Yes (Other)
  Sender: FDA-Public Use
  Company Number: PHHY2017FR184419

PATIENT
  Age: 31 Year
  Sex: Male

DRUGS (1)
  1. METHOTREXATE. [Suspect]
     Active Substance: METHOTREXATE
     Indication: LARGE GRANULAR LYMPHOCYTOSIS
     Route: 065

REACTIONS (2)
  - Lymphocyte count decreased [Unknown]
  - Aplasia pure red cell [Unknown]
